FAERS Safety Report 5751683-5 (Version None)
Quarter: 2008Q2

REPORT INFORMATION
  Report Type: 
  Country: None (occurrence: None)
  Receive Date: 20080528
  Receipt Date: 20080522
  Transmission Date: 20081010
  Serious: Yes (Hospitalization)
  Sender: FDA-Public Use
  Company Number: PHHY2008ES08751

PATIENT

DRUGS (2)
  1. TORECAN [Suspect]
     Indication: VERTIGO
     Dosage: UNK
     Route: 048
     Dates: start: 20070816
  2. SEROXAT [Concomitant]
     Indication: DEPRESSION

REACTIONS (3)
  - DYSKINESIA [None]
  - PARAESTHESIA ORAL [None]
  - SPEECH DISORDER [None]
